FAERS Safety Report 9940663 (Version 1)
Quarter: 2014Q1

REPORT INFORMATION
  Report Type: Spontaneous
  Country: FR (occurrence: FR)
  Receive Date: 20140303
  Receipt Date: 20140303
  Transmission Date: 20141002
  Serious: Yes (Hospitalization)
  Sender: FDA-Public Use
  Company Number: FR-EISAI INC-E3810-06926-SPO-FR

PATIENT
  Age: 82 Year
  Sex: Male

DRUGS (12)
  1. PARIET (RABEPRAZOLE) [Suspect]
     Route: 048
     Dates: start: 20140110, end: 20140113
  2. OROKEN [Suspect]
     Route: 048
     Dates: start: 20140110
  3. AZITHROMYCIN [Suspect]
     Dosage: UNKNOWN
     Route: 048
     Dates: start: 20140106
  4. SURGAM [Suspect]
     Route: 048
     Dates: start: 20140110
  5. LYRICA [Suspect]
     Route: 048
  6. COLCHIMAX [Suspect]
     Dosage: UNKNOWN
     Route: 048
  7. CORTANCYL [Concomitant]
  8. PROGRAFT [Concomitant]
  9. ATACAND [Concomitant]
  10. KAYEXALATE [Concomitant]
  11. ADENURIC [Concomitant]
  12. CATAPRESSAN [Concomitant]

REACTIONS (2)
  - Confusional state [Unknown]
  - Disorientation [Unknown]
